FAERS Safety Report 10051674 (Version 1)
Quarter: 2014Q1

REPORT INFORMATION
  Report Type: Spontaneous
  Country: GB (occurrence: None)
  Receive Date: 20140331
  Receipt Date: 20140331
  Transmission Date: 20141002
  Serious: Yes (Other)
  Sender: FDA-Public Use
  Company Number: 2014GB00293

PATIENT
  Sex: Female

DRUGS (2)
  1. EPIRUBICIN [Suspect]
     Indication: BREAST CANCER METASTATIC
     Dosage: DAY 1 OF 3 WEEK CYCLE
  2. VINFLUNINE [Suspect]
     Indication: BREAST CANCER METASTATIC
     Dosage: 1 OF 3 WEEK CYCLE

REACTIONS (1)
  - Syncope [None]
